FAERS Safety Report 10195306 (Version 1)
Quarter: 2014Q2

REPORT INFORMATION
  Report Type: Report from Study
  Country: DE (occurrence: DE)
  Receive Date: 20140526
  Receipt Date: 20140526
  Transmission Date: 20141212
  Serious: Yes (Other)
  Sender: FDA-Public Use
  Company Number: DE-JNJFOC-20140512318

PATIENT
  Age: 57 Year
  Sex: Female

DRUGS (5)
  1. RIVAROXABAN [Suspect]
     Indication: DEEP VEIN THROMBOSIS
     Dosage: TOTAL DAILY DOSE 30MG
     Route: 048
     Dates: start: 20140306, end: 20140326
  2. RIVAROXABAN [Suspect]
     Indication: DEEP VEIN THROMBOSIS
     Route: 048
     Dates: start: 20140327, end: 20140512
  3. RIVAROXABAN [Suspect]
     Indication: THROMBOSIS PROPHYLAXIS
     Route: 048
     Dates: start: 20140327, end: 20140512
  4. RIVAROXABAN [Suspect]
     Indication: THROMBOSIS PROPHYLAXIS
     Dosage: TOTAL DAILY DOSE 30MG
     Route: 048
     Dates: start: 20140306, end: 20140326
  5. PREDNISOLON [Concomitant]
     Route: 065
     Dates: start: 20140320

REACTIONS (2)
  - Alopecia [Recovering/Resolving]
  - Arthralgia [Not Recovered/Not Resolved]
